FAERS Safety Report 5492770-9 (Version None)
Quarter: 2007Q4

REPORT INFORMATION
  Report Type: 
  Country: None (occurrence: None)
  Receive Date: 20071023
  Receipt Date: 20071012
  Transmission Date: 20080405
  Serious: Yes (Other)
  Sender: FDA-Public Use
  Company Number: PHMT2007CA02089

PATIENT
  Age: 76 Year
  Sex: Female
  Weight: 37 kg

DRUGS (2)
  1. DIOVAN HCT [Suspect]
     Dosage: 160 MG QD
     Dates: end: 20071012
  2. DIURETICS [Suspect]
     Dosage: UNK, UNK

REACTIONS (1)
  - HYPONATRAEMIA [None]
